FAERS Safety Report 24728176 (Version 1)
Quarter: 2024Q4

REPORT INFORMATION
  Report Type: Spontaneous
  Country: ES (occurrence: ES)
  Receive Date: 20241212
  Receipt Date: 20241212
  Transmission Date: 20250115
  Serious: Yes (Life-Threatening, Other)
  Sender: PFIZER
  Company Number: ES-PFIZER INC-2009180481

PATIENT
  Age: 31 Year
  Sex: Female

DRUGS (3)
  1. PEGVISOMANT [Suspect]
     Active Substance: PEGVISOMANT
     Indication: Acromegaly
     Dosage: 10 MG, 1X/DAY
  2. OCTREOTIDE ACETATE [Suspect]
     Active Substance: OCTREOTIDE ACETATE
     Indication: Acromegaly
     Dosage: 30 MG/28 DAYS
  3. SOMATOSTATIN ACETATE [Concomitant]
     Dosage: UNK

REACTIONS (3)
  - Hepatitis [Recovered/Resolved]
  - Hepatic enzyme increased [Recovered/Resolved]
  - Hypertransaminasaemia [Recovered/Resolved]
